FAERS Safety Report 6923102-4 (Version None)
Quarter: 2010Q3

REPORT INFORMATION
  Report Type: 
  Country: None (occurrence: None)
  Receive Date: 20100813
  Receipt Date: 20100808
  Transmission Date: 20110219
  Serious: Yes (Other)
  Sender: FDA-Public Use
  Company Number: FR-PFIZER INC-2010003059

PATIENT
  Sex: Male

DRUGS (1)
  1. ZOLOFT [Suspect]
     Indication: ANXIETY
     Dosage: 150 MG, UNK
     Dates: start: 20050101

REACTIONS (2)
  - HEAT STROKE [None]
  - PHOTOSENSITIVITY REACTION [None]
